FAERS Safety Report 4344721-8 (Version None)
Quarter: 2004Q2

REPORT INFORMATION
  Report Type: 
  Country: None (occurrence: None)
  Receive Date: 20040420
  Receipt Date: 20040409
  Transmission Date: 20050107
  Serious: Yes (Other)
  Sender: FDA-Public Use
  Company Number: 2004208656DE

PATIENT
  Age: 73 Year
  Sex: Male

DRUGS (5)
  1. CAMPTOSAR [Suspect]
     Indication: COLON CANCER
     Dosage: 80MG/M2, CYCLIC
     Dates: start: 20030812, end: 20030812
  2. FLUOROURACIL [Suspect]
     Indication: COLON CANCER
     Dosage: 2000 MG/M2, CYCLIC
     Dates: start: 20030812, end: 20030812
  3. LEUCOVORIN CALCIUM [Suspect]
     Indication: COLON CANCER
     Dosage: 500 MG/M2, CYCLIC
     Dates: start: 20030812, end: 20030812
  4. ATROPINE [Concomitant]
  5. DEXAMETASON [Concomitant]

REACTIONS (1)
  - EMOTIONAL DISORDER [None]
